FAERS Safety Report 22220266 (Version 2)
Quarter: 2023Q2

REPORT INFORMATION
  Report Type: Report from Study
  Country: MY (occurrence: MY)
  Receive Date: 20230417
  Receipt Date: 20230418
  Transmission Date: 20230722
  Serious: Yes (Hospitalization)
  Sender: FDA-Public Use
  Company Number: MY-JNJFOC-20230430161

PATIENT
  Age: 56 Year
  Sex: Male

DRUGS (14)
  1. AMIVANTAMAB [Suspect]
     Active Substance: AMIVANTAMAB
     Indication: Non-small cell lung cancer metastatic
     Route: 042
     Dates: start: 20210819, end: 20230119
  2. HYDROCORTISONE [Concomitant]
     Active Substance: HYDROCORTISONE
     Indication: Dermatitis acneiform
     Route: 061
     Dates: start: 20210827
  3. HYDROCORTISONE [Concomitant]
     Active Substance: HYDROCORTISONE
     Indication: Pruritus
  4. DOXYCYCLINE [Concomitant]
     Active Substance: DOXYCYCLINE
     Indication: Dermatitis acneiform
     Route: 048
     Dates: start: 20210901
  5. DOXYCYCLINE [Concomitant]
     Active Substance: DOXYCYCLINE
     Indication: Paronychia
  6. CETRIMIDE [Concomitant]
     Active Substance: CETRIMIDE
     Indication: Paronychia
     Route: 061
     Dates: start: 20210908
  7. CETRIMIDE [Concomitant]
     Active Substance: CETRIMIDE
     Indication: Dermatitis acneiform
  8. CLOBETASONE BUTYRATE [Concomitant]
     Active Substance: CLOBETASONE BUTYRATE
     Indication: Rash
     Route: 061
     Dates: start: 20210908
  9. CLOBETASONE BUTYRATE [Concomitant]
     Active Substance: CLOBETASONE BUTYRATE
     Indication: Dermatitis acneiform
  10. DENOSUMAB [Concomitant]
     Active Substance: DENOSUMAB
     Indication: Prophylaxis
     Dosage: FREQUENCY: ONCE
     Route: 030
     Dates: start: 20210930
  11. MUPIROCIN [Concomitant]
     Active Substance: MUPIROCIN
     Indication: Paronychia
     Dosage: DOSE: 1
     Route: 061
     Dates: start: 20220622
  12. TRANEXAMIC ACID [Concomitant]
     Active Substance: TRANEXAMIC ACID
     Indication: Epistaxis
     Route: 048
     Dates: start: 20220803
  13. FUSIDIC ACID [Concomitant]
     Active Substance: FUSIDIC ACID
     Indication: Paronychia
     Dosage: FREQUENCY: ONCE, DOSE: 1
     Route: 061
     Dates: start: 20220928
  14. WHITE PINE OIL [Concomitant]
     Active Substance: WHITE PINE OIL
     Indication: Rash
     Dosage: FREQUENCY: 3 TIMES PER WEEK
     Route: 061
     Dates: start: 20221207

REACTIONS (1)
  - Hyponatraemia [Not Recovered/Not Resolved]

NARRATIVE: CASE EVENT DATE: 20230412
